FAERS Safety Report 5024056-0 (Version None)
Quarter: 2006Q2

REPORT INFORMATION
  Report Type: 
  Country: None (occurrence: None)
  Receive Date: 20060612
  Receipt Date: 20060512
  Transmission Date: 20061013
  Serious: Yes (Life-Threatening, Hospitalization)
  Sender: FDA-Public Use
  Company Number: JP-MERCK-0605USA02944

PATIENT
  Age: 65 Year
  Sex: Male

DRUGS (12)
  1. ZOCOR [Suspect]
     Route: 048
  2. SULPIRIDE [Concomitant]
     Route: 048
  3. DEPAS [Concomitant]
     Route: 048
  4. SODIUM GUALENATE [Concomitant]
     Route: 048
  5. URSO [Concomitant]
     Route: 048
  6. GLYCYRON [Concomitant]
     Route: 048
  7. TRYPTANOL [Concomitant]
     Route: 048
  8. NIFELAT [Concomitant]
     Route: 048
  9. FAMOTIDINE [Concomitant]
     Route: 048
  10. NITRAZEPAM [Concomitant]
     Route: 048
  11. SILECE [Concomitant]
     Route: 048
  12. LOXONIN [Concomitant]
     Route: 048

REACTIONS (1)
  - RHABDOMYOLYSIS [None]
